FAERS Safety Report 6846981-8 (Version None)
Quarter: 2010Q3

REPORT INFORMATION
  Report Type: 
  Country: None (occurrence: None)
  Receive Date: 20100713
  Receipt Date: 20100628
  Transmission Date: 20110219
  Serious: Yes (Hospitalization)
  Sender: FDA-Public Use
  Company Number: IDA-00377

PATIENT
  Age: 73 Year
  Sex: Female

DRUGS (5)
  1. PROPRANOLOL [Suspect]
     Dosage: 160 MG DAILY/ORAL
     Route: 048
  2. NEXIUM [Suspect]
     Dosage: 40 MG BID / 40 MG DAILY/ ORAL
     Route: 048
  3. REPAGLINIDE [Suspect]
     Indication: DIABETES MELLITUS
     Dosage: ORAL
     Dates: end: 20100401
  4. IMOVANE (ZOPICLONE) STRENGTH: 3.75MG [Suspect]
     Dosage: 3.75 MG DAILY ORAL
     Route: 048
     Dates: end: 20100501
  5. XANAX [Suspect]
     Dosage: .25 MG DAILY ORAL
     Route: 048
     Dates: end: 20100501

REACTIONS (1)
  - ANAEMIA HAEMOLYTIC AUTOIMMUNE [None]
